FAERS Safety Report 5995879-6 (Version None)
Quarter: 2008Q4

REPORT INFORMATION
  Report Type: 
  Country: None (occurrence: None)
  Receive Date: 20081212
  Receipt Date: 20081202
  Transmission Date: 20090506
  Serious: Yes (Other)
  Sender: FDA-Public Use
  Company Number: BR-PFIZER INC-2008150731

PATIENT

DRUGS (5)
  1. LIPITOR [Suspect]
     Indication: BLOOD CHOLESTEROL
     Dosage: 20 MG, UNK
     Route: 048
     Dates: start: 20071002
  2. LIPITOR [Suspect]
     Indication: BLOOD TRIGLYCERIDES
  3. LIPITOR [Suspect]
     Indication: CARDIAC DISORDER
  4. PROPRANOLOL [Concomitant]
     Route: 065
  5. HYDROCHLOROTHIAZIDE [Concomitant]
     Route: 065

REACTIONS (10)
  - ABASIA [None]
  - BLOOD CHOLESTEROL INCREASED [None]
  - BLOOD TRIGLYCERIDES INCREASED [None]
  - DYSPNOEA [None]
  - FATIGUE [None]
  - FEELING HOT [None]
  - FORMICATION [None]
  - HYPERTENSIVE CRISIS [None]
  - OEDEMA [None]
  - PAIN IN EXTREMITY [None]
